FAERS Safety Report 5297611-0 (Version None)
Quarter: 2007Q2

REPORT INFORMATION
  Report Type: 
  Country: None (occurrence: None)
  Receive Date: 20070409
  Receipt Date: 20070326
  Transmission Date: 20071010
  Serious: Yes (Death, Hospitalization)
  Sender: FDA-Public Use
  Company Number: 2006JP005340

PATIENT
  Sex: Male
  Weight: 62.3 kg

DRUGS (7)
  1. TACROLIMUS [Suspect]
     Indication: RHEUMATOID ARTHRITIS
     Dosage: 1.5 MG, UNKNOWN/D, ORAL
     Route: 048
     Dates: start: 20060125, end: 20060731
  2. VOLTAREN CAPSULE [Concomitant]
  3. RHEUMATREX [Concomitant]
  4. ENBREL [Concomitant]
  5. CYTOTEC [Concomitant]
  6. FOLIAMIN (FOLIC ACID) PER ORAL NOS [Concomitant]
  7. ISCOTIN (ISONIAZID) PER ORAL NOS [Concomitant]

REACTIONS (2)
  - GASTRIC CANCER [None]
  - METASTASES TO LIVER [None]
